FAERS Safety Report 12648881 (Version 1)
Quarter: 2016Q3

REPORT INFORMATION
  Report Type: Spontaneous
  Country: US (occurrence: US)
  Receive Date: 20160812
  Receipt Date: 20160812
  Transmission Date: 20161109
  Serious: No
  Sender: FDA-Public Use
  Company Number: US-SHIRE-US201610248

PATIENT
  Sex: Male

DRUGS (1)
  1. VPRIV [Suspect]
     Active Substance: VELAGLUCERASE ALFA
     Indication: GAUCHER^S DISEASE
     Dosage: 4400 IU, 1X/2WKS
     Route: 041
     Dates: start: 20120503

REACTIONS (2)
  - Wrong technique in product usage process [Not Recovered/Not Resolved]
  - No adverse event [Not Recovered/Not Resolved]
